FAERS Safety Report 4707581-9 (Version None)
Quarter: 2005Q3

REPORT INFORMATION
  Report Type: 
  Country: None (occurrence: None)
  Receive Date: 20050706
  Receipt Date: 20050512
  Transmission Date: 20060218
  Serious: Yes (Hospitalization, Other)
  Sender: FDA-Public Use
  Company Number: PHFR2005GB01793

PATIENT
  Age: 24 Year
  Sex: Female

DRUGS (3)
  1. NEORAL [Suspect]
     Indication: ANAPHYLACTIC REACTION
     Dosage: 150 MG, BID
     Route: 048
  2. PREDNISOLONE [Concomitant]
     Indication: ANGIONEUROTIC OEDEMA
     Route: 048
     Dates: start: 20050401
  3. ANTI-HISTAMINE TAB [Concomitant]
     Indication: ANGIONEUROTIC OEDEMA
     Route: 048
     Dates: start: 20050401

REACTIONS (2)
  - BENIGN INTRACRANIAL HYPERTENSION [None]
  - HIRSUTISM [None]
